FAERS Safety Report 5922675-8 (Version None)
Quarter: 2008Q4

REPORT INFORMATION
  Report Type: 
  Country: None (occurrence: None)
  Receive Date: 20081014
  Receipt Date: 20081006
  Transmission Date: 20090506
  Serious: Yes (Hospitalization)
  Sender: FDA-Public Use
  Company Number: SPV1-2008-02131

PATIENT
  Age: 31 Year
  Sex: Female
  Weight: 52.2 kg

DRUGS (2)
  1. ADDERALL XR 10 [Suspect]
     Indication: ATTENTION DEFICIT/HYPERACTIVITY DISORDER
     Dosage: 30 MG, 1X/DAY:QD, ORAL, 15 MG, 2X/DAY:BID, ORAL
     Route: 048
     Dates: start: 20070701, end: 20071001
  2. ADDERALL XR 10 [Suspect]
     Indication: ATTENTION DEFICIT/HYPERACTIVITY DISORDER
     Dosage: 30 MG, 1X/DAY:QD, ORAL, 15 MG, 2X/DAY:BID, ORAL
     Route: 048
     Dates: start: 20071001

REACTIONS (5)
  - CEREBROVASCULAR ARTERIOVENOUS MALFORMATION [None]
  - DRUG EFFECT DECREASED [None]
  - INAPPROPRIATE SCHEDULE OF DRUG ADMINISTRATION [None]
  - OVERDOSE [None]
  - RAYNAUD'S PHENOMENON [None]
